FAERS Safety Report 21815839 (Version 1)
Quarter: 2023Q1

REPORT INFORMATION
  Report Type: Spontaneous
  Country: US (occurrence: US)
  Receive Date: 20230104
  Receipt Date: 20230104
  Transmission Date: 20230418
  Serious: No
  Sender: FDA-Public Use
  Company Number: US-GSKCCFUS-Case-01591646_AE-89938

PATIENT
  Sex: Male

DRUGS (2)
  1. BREO ELLIPTA [Suspect]
     Active Substance: FLUTICASONE FUROATE\VILANTEROL TRIFENATATE
     Indication: Product used for unknown indication
     Dosage: 100 UG, BID 100/25
     Route: 055
  2. BREO ELLIPTA [Suspect]
     Active Substance: FLUTICASONE FUROATE\VILANTEROL TRIFENATATE
     Dosage: 100 UG 100/25
     Route: 055

REACTIONS (5)
  - Upper-airway cough syndrome [Unknown]
  - Influenza [Not Recovered/Not Resolved]
  - Bronchitis [Recovered/Resolved]
  - Wrong technique in device usage process [Recovered/Resolved]
  - Inappropriate schedule of product administration [Not Recovered/Not Resolved]
